FAERS Safety Report 25246764 (Version 2)
Quarter: 2025Q2

REPORT INFORMATION
  Report Type: Spontaneous
  Country: SK (occurrence: SK)
  Receive Date: 20250428
  Receipt Date: 20250618
  Transmission Date: 20250716
  Serious: Yes (Death, Other)
  Sender: PFIZER
  Company Number: SK-ROCHE-10000262360

PATIENT
  Age: 69 Year
  Sex: Male

DRUGS (5)
  1. BEVACIZUMAB [Suspect]
     Active Substance: BEVACIZUMAB
     Indication: Transitional cell carcinoma
     Dates: start: 202003
  2. GEMCITABINE [Suspect]
     Active Substance: GEMCITABINE
     Indication: Transitional cell carcinoma
     Dates: start: 202003
  3. GEMCITABINE [Suspect]
     Active Substance: GEMCITABINE
  4. PEMETREXED [Suspect]
     Active Substance: PEMETREXED
     Indication: Transitional cell carcinoma
  5. ERLOTINIB [Suspect]
     Active Substance: ERLOTINIB
     Indication: Transitional cell carcinoma
     Route: 048

REACTIONS (6)
  - Pulmonary embolism [Fatal]
  - Thrombocytopenia [Unknown]
  - Pancytopenia [Unknown]
  - Transitional cell carcinoma [Unknown]
  - Malignant neoplasm progression [Unknown]
  - Bronchostenosis [Unknown]
